FAERS Safety Report 16880844 (Version 6)
Quarter: 2021Q1

REPORT INFORMATION
  Report Type: Spontaneous
  Country: US (occurrence: US)
  Receive Date: 20191003
  Receipt Date: 20210317
  Transmission Date: 20210419
  Serious: No
  Sender: FDA-Public Use
  Company Number: US-PFIZER INC-2019417074

PATIENT
  Age: 3 Year
  Sex: Male

DRUGS (3)
  1. GENOTROPIN [Suspect]
     Active Substance: SOMATROPIN
     Dosage: UNK, 1X/DAY
  2. GENOTROPIN [Suspect]
     Active Substance: SOMATROPIN
     Indication: SILVER-RUSSELL SYNDROME
     Dosage: 0.6 MG, DAILY
     Dates: start: 20161208
  3. GENOTROPIN [Suspect]
     Active Substance: SOMATROPIN
     Dosage: 0.5 MG, DAILY

REACTIONS (7)
  - Drug dose omission by device [Unknown]
  - Blood glucose increased [Unknown]
  - Blood urea nitrogen/creatinine ratio increased [Unknown]
  - Device issue [Unknown]
  - Blood urea increased [Unknown]
  - Off label use [Unknown]
  - Product use in unapproved indication [Unknown]

NARRATIVE: CASE EVENT DATE: 20161208
